FAERS Safety Report 7504504-4 (Version None)
Quarter: 2011Q2

REPORT INFORMATION
  Report Type: 
  Country: None (occurrence: None)
  Receive Date: 20110525
  Receipt Date: 20110513
  Transmission Date: 20111010
  Serious: Yes (Life-Threatening, Hospitalization, Other)
  Sender: FDA-Public Use
  Company Number: FR-UCBSA-032241

PATIENT
  Sex: Male
  Weight: 74 kg

DRUGS (7)
  1. EQUANIL [Concomitant]
     Indication: AGITATION
     Route: 048
  2. CIMZIA [Suspect]
     Indication: RHEUMATOID ARTHRITIS
     Route: 058
     Dates: start: 20101125, end: 20110414
  3. DAFLON [Concomitant]
     Indication: VENOUS INSUFFICIENCY
     Route: 048
  4. PREDNISONE [Concomitant]
     Route: 048
  5. ASPIRIN [Concomitant]
     Indication: PROPHYLAXIS
     Route: 048
  6. NEXIUM [Concomitant]
     Indication: RHEUMATOID ARTHRITIS
     Route: 048
  7. METHOTREXATE SODIUM [Concomitant]
     Route: 048

REACTIONS (5)
  - CONFUSIONAL STATE [None]
  - DYSURIA [None]
  - LUNG DISORDER [None]
  - ASTHENIA [None]
  - ESCHERICHIA SEPSIS [None]
